FAERS Safety Report 24308871 (Version 1)
Quarter: 2024Q3

REPORT INFORMATION
  Report Type: Spontaneous
  Country: US (occurrence: US)
  Receive Date: 20240911
  Receipt Date: 20240911
  Transmission Date: 20241016
  Serious: No
  Sender: PFIZER
  Company Number: US-PFIZER INC-PV202400118773

PATIENT
  Age: 41 Year

DRUGS (1)
  1. CIBINQO [Suspect]
     Active Substance: ABROCITINIB
     Route: 048

REACTIONS (1)
  - Blood test abnormal [Unknown]
